FAERS Safety Report 17202265 (Version 4)
Quarter: 2023Q1

REPORT INFORMATION
  Report Type: Report from Study
  Country: US (occurrence: US)
  Receive Date: 20191226
  Receipt Date: 20230217
  Transmission Date: 20230417
  Serious: Yes (Other)
  Sender: FDA-Public Use
  Company Number: US-JNJFOC-20191239689

PATIENT
  Age: 38 Year
  Sex: Female
  Weight: 97.5 kg

DRUGS (1)
  1. ELMIRON [Suspect]
     Active Substance: PENTOSAN POLYSULFATE SODIUM
     Indication: Cystitis interstitial
     Dosage: MEAN DAILY DOSE, 400 MG
     Route: 065

REACTIONS (1)
  - Maculopathy [Not Recovered/Not Resolved]
